FAERS Safety Report 13596292 (Version 1)
Quarter: 2017Q2

REPORT INFORMATION
  Report Type: Spontaneous
  Country: US (occurrence: US)
  Receive Date: 20170531
  Receipt Date: 20170531
  Transmission Date: 20170830
  Serious: No
  Sender: FDA-Public Use
  Company Number: US-JNJFOC-20170403330

PATIENT
  Age: 9 Decade
  Sex: Female
  Weight: 56.7 kg

DRUGS (1)
  1. TYLENOL EXTRA STRENGTH [Suspect]
     Active Substance: ACETAMINOPHEN
     Indication: PAIN
     Dosage: 1/2 TABLET AS NEEDED
     Route: 048

REACTIONS (3)
  - Product label issue [Unknown]
  - Wrong technique in product usage process [Unknown]
  - Product size issue [Unknown]
